FAERS Safety Report 7798107-4 (Version None)
Quarter: 2011Q4

REPORT INFORMATION
  Report Type: 
  Country: None (occurrence: None)
  Receive Date: 20111005
  Receipt Date: 20110930
  Transmission Date: 20120403
  Serious: Yes (Other)
  Sender: FDA-Public Use
  Company Number: US-ABBOTT-11P-163-0734017-00

PATIENT
  Age: 41 Year
  Sex: Female
  Weight: 124.12 kg

DRUGS (16)
  1. VITAMIN D [Concomitant]
     Indication: PROPHYLAXIS
     Dates: start: 20100806
  2. VITAMIN B COMPLEX CAP [Concomitant]
     Indication: PROPHYLAXIS
     Dates: start: 20110401
  3. NERATINIB; PLACEBO (BLINDED) [Suspect]
     Indication: BREAST CANCER
     Route: 048
     Dates: start: 20100217, end: 20110212
  4. LIPITOR [Suspect]
     Indication: HYPERTRIGLYCERIDAEMIA
     Dosage: DAILY AT BEDTIME
     Dates: start: 20100318, end: 20110421
  5. MULTIVITAMIN ^LAPPE^ [Concomitant]
     Indication: PROPHYLAXIS
     Dates: start: 20080131
  6. TRILIPIX [Suspect]
     Dates: start: 20110525
  7. GLUCOVANCE [Concomitant]
     Indication: DIABETES MELLITUS
     Dates: start: 20051003
  8. ASPIRIN [Concomitant]
     Indication: PROPHYLAXIS
     Dates: start: 20100217
  9. IMODIUM JASSEN [Concomitant]
     Indication: DIARRHOEA
  10. TRILIPIX [Suspect]
     Indication: HYPERTRIGLYCERIDAEMIA
     Dosage: DAILY AT BEDTIME
     Dates: start: 20100318, end: 20100421
  11. CORICIDIN [Concomitant]
     Indication: HYPERSENSITIVITY
     Dates: start: 20101107
  12. FEMARA [Concomitant]
     Indication: BREAST CANCER
     Dates: start: 20100217
  13. CALCIUM WITH VITAMIN D [Concomitant]
     Indication: PROPHYLAXIS
     Dates: start: 20080529
  14. LANTUS [Concomitant]
     Indication: DIABETES MELLITUS
     Dates: start: 20100217
  15. CORICIDIN [Concomitant]
     Indication: UPPER RESPIRATORY TRACT INFECTION
  16. MAGNESIUM [Concomitant]
     Indication: BLOOD MAGNESIUM DECREASED
     Dates: start: 20070412

REACTIONS (4)
  - DRUG DOSE OMISSION [None]
  - TREATMENT NONCOMPLIANCE [None]
  - UPPER RESPIRATORY TRACT INFECTION [None]
  - HYPERTRIGLYCERIDAEMIA [None]
